FAERS Safety Report 8984290 (Version 1)
Quarter: 2012Q4

REPORT INFORMATION
  Report Type: Report from Study
  Country: BE (occurrence: BE)
  Receive Date: 20121226
  Receipt Date: 20121226
  Transmission Date: 20130627
  Serious: Yes (Hospitalization)
  Sender: FDA-Public Use
  Company Number: BE-UCBSA-073815

PATIENT
  Age: 50 Year
  Sex: Female
  Weight: 62 kg

DRUGS (3)
  1. CIMZIA [Suspect]
     Indication: CROHN^S DISEASE
     Dosage: NUMBER OF DOSES RECEIVED: 7
     Route: 058
     Dates: start: 20120312, end: 20120731
  2. COLESTID [Concomitant]
     Indication: DIARRHOEA
     Dosage: NO. OF DOSES RECEIVED: 1-2, DOSE PER INTAKE: 1
     Route: 048
  3. LOPERAMIDE [Concomitant]
     Indication: DIARRHOEA
     Dosage: DOSE PER INTAKE: 1
     Route: 048

REACTIONS (1)
  - Ventricular tachycardia [Recovering/Resolving]
